FAERS Safety Report 4428472-7 (Version None)
Quarter: 2004Q3

REPORT INFORMATION
  Report Type: 
  Country: None (occurrence: None)
  Receive Date: 20040816
  Receipt Date: 20040804
  Transmission Date: 20050211
  Serious: Yes (Disabling)
  Sender: FDA-Public Use
  Company Number: 04H-163-0269529-00

PATIENT
  Sex: Female

DRUGS (1)
  1. BUPIVACAINE HYDROCHLORIDE INJECTION (BUPIVACAINE HYDROCHLORIDE) (BUPIV [Suspect]
     Indication: POSTOPERATIVE ANALGESIA
     Dosage: 5 CC, 2-3 TIMES, INTRANEURAL
     Dates: start: 20020101, end: 20020101

REACTIONS (1)
  - PARALYSIS [None]
